FAERS Safety Report 18579129 (Version 1)
Quarter: 2020Q4

REPORT INFORMATION
  Report Type: Spontaneous
  Country: US (occurrence: US)
  Receive Date: 20201202
  Receipt Date: 20201202
  Transmission Date: 20210114
  Serious: Yes (Hospitalization)
  Sender: FDA-Public Use
  Company Number: None

PATIENT
  Age: 18 Year
  Sex: Female

DRUGS (19)
  1. FAMOTIDINE. [Concomitant]
     Active Substance: FAMOTIDINE
  2. HUMALOG [Concomitant]
     Active Substance: INSULIN LISPRO
  3. TOBRAMYCIN. [Concomitant]
     Active Substance: TOBRAMYCIN
  4. VITAMIN D [Concomitant]
     Active Substance: VITAMIN D NOS
  5. ADVAIR HFA [Concomitant]
     Active Substance: FLUTICASONE PROPIONATE\SALMETEROL XINAFOATE
  6. CIPROFLOXACIN. [Concomitant]
     Active Substance: CIPROFLOXACIN
  7. FLONASE SPR [Concomitant]
  8. LIDOCAINE. [Concomitant]
     Active Substance: LIDOCAINE
  9. BOOST PLUS [Concomitant]
     Active Substance: DIETARY SUPPLEMENT
  10. URSODIOL. [Concomitant]
     Active Substance: URSODIOL
  11. LEVABULTEROL NEB [Concomitant]
  12. SODIUM CHLOR NEB [Concomitant]
  13. PULMOZYME [Suspect]
     Active Substance: DORNASE ALFA
     Indication: CYSTIC FIBROSIS
     Dosage: 1 VIAL (2.5MG) QD INH
     Route: 055
     Dates: start: 20180802
  14. AQUADEKS [Concomitant]
     Active Substance: MINERALS\VITAMINS
  15. CREON [Concomitant]
     Active Substance: PANCRELIPASE AMYLASE\PANCRELIPASE LIPASE\PANCRELIPASE PROTEASE
  16. ITRACONAZOLE. [Concomitant]
     Active Substance: ITRACONAZOLE
  17. LANTUS [Concomitant]
     Active Substance: INSULIN GLARGINE
  18. AZITHROMYCIN ANHYDROUS. [Concomitant]
     Active Substance: AZITHROMYCIN ANHYDROUS
  19. PREDNISONE. [Concomitant]
     Active Substance: PREDNISONE

REACTIONS (1)
  - Condition aggravated [None]

NARRATIVE: CASE EVENT DATE: 20201128
